FAERS Safety Report 18118174 (Version 2)
Quarter: 2021Q2

REPORT INFORMATION
  Report Type: Spontaneous
  Country: US (occurrence: US)
  Receive Date: 20200806
  Receipt Date: 20210604
  Transmission Date: 20210717
  Serious: Yes (Other)
  Sender: FDA-Public Use
  Company Number: US-GILEAD-2020-0487668

PATIENT
  Age: 56 Year
  Sex: Male

DRUGS (2)
  1. TRUVADA [Suspect]
     Active Substance: EMTRICITABINE\TENOFOVIR DISOPROXIL FUMARATE
     Indication: HIV INFECTION
     Dosage: UNK
     Route: 048
     Dates: start: 2012, end: 2018
  2. BIKTARVY [Concomitant]
     Active Substance: BICTEGRAVIR SODIUM\EMTRICITABINE\TENOFOVIR ALAFENAMIDE FUMARATE

REACTIONS (7)
  - Multiple fractures [Unknown]
  - Renal failure [Unknown]
  - Chronic kidney disease [Unknown]
  - Bone density decreased [Unknown]
  - Vitamin D deficiency [Unknown]
  - Tooth loss [Unknown]
  - Upper limb fracture [Not Recovered/Not Resolved]

NARRATIVE: CASE EVENT DATE: 201909
